FAERS Safety Report 6547866-7 (Version None)
Quarter: 2010Q1

REPORT INFORMATION
  Report Type: 
  Country: None (occurrence: None)
  Receive Date: 20100124
  Receipt Date: 20091106
  Transmission Date: 20100710
  Serious: No
  Sender: FDA-Public Use
  Company Number: US-ALEXION-A200900929

PATIENT
  Sex: Female

DRUGS (12)
  1. SOLIRIS [Suspect]
     Indication: PAROXYSMAL NOCTURNAL HAEMOGLOBINURIA
     Dosage: 600 MG, QWX4
     Route: 042
     Dates: start: 20090916, end: 20091006
  2. SOLIRIS [Suspect]
     Dosage: 900 MG, UNK
     Route: 042
     Dates: start: 20091013
  3. ORAL ANTIDIABETICS [Concomitant]
     Route: 048
  4. NEUPOGEN [Concomitant]
     Dosage: UNK
  5. PREVACID [Concomitant]
     Dosage: UNK
     Route: 048
  6. GABAPENTIN [Concomitant]
     Dosage: UNK
     Route: 048
  7. SIMVASTATIN [Concomitant]
     Indication: BLOOD CHOLESTEROL INCREASED
     Dosage: UNK
     Route: 048
  8. AMLODIPINE [Concomitant]
     Dosage: UNK
     Route: 048
  9. EXJADE [Concomitant]
     Dosage: UNK
     Route: 048
  10. TYLENOL (CAPLET) [Concomitant]
     Dosage: UNK
     Route: 048
  11. ASPIRIN [Concomitant]
     Dosage: UNK
     Route: 048
  12. FENTANYL [Concomitant]
     Dosage: UNK
     Dates: end: 20091109

REACTIONS (5)
  - ABDOMINAL PAIN UPPER [None]
  - BLOOD GLUCOSE INCREASED [None]
  - OEDEMA PERIPHERAL [None]
  - PAIN [None]
  - VOMITING [None]
